FAERS Safety Report 10471082 (Version 2)
Quarter: 2015Q1

REPORT INFORMATION
  Report Type: Spontaneous
  Country: US (occurrence: None)
  Receive Date: 20140917
  Receipt Date: 20150319
  Transmission Date: 20150720
  Serious: No
  Sender: FDA-Public Use
  Company Number: 2014CT000064

PATIENT
  Age: 36 Year
  Sex: Male
  Weight: 79.38 kg

DRUGS (4)
  1. METOPROLOL [Concomitant]
     Active Substance: METOPROLOL
  2. SPIRONOLACTONE. [Concomitant]
     Active Substance: SPIRONOLACTONE
  3. KORLYM [Suspect]
     Active Substance: MIFEPRISTONE
     Indication: CUSHING^S SYNDROME
     Route: 048
     Dates: start: 201403
  4. LISINOPRIL. [Concomitant]
     Active Substance: LISINOPRIL

REACTIONS (6)
  - Hypoaesthesia [None]
  - Neuropathy peripheral [None]
  - Oedema peripheral [None]
  - Hyperthyroidism [None]
  - Paraesthesia [None]
  - Gait disturbance [None]

NARRATIVE: CASE EVENT DATE: 201404
